FAERS Safety Report 7864164-X (Version None)
Quarter: 2011Q4

REPORT INFORMATION
  Report Type: 
  Country: None (occurrence: None)
  Receive Date: 20111028
  Receipt Date: 20111019
  Transmission Date: 20120403
  Serious: Yes (Hospitalization)
  Sender: FDA-Public Use
  Company Number: FR-PFIZER INC-2011259924

PATIENT
  Age: 85 Year
  Sex: Male

DRUGS (8)
  1. STALEVO 100 [Suspect]
     Indication: PARKINSON'S DISEASE
     Dosage: 4 DF, 1X/DAY
     Route: 048
     Dates: start: 20060101
  2. LEVOTHYROXINE SODIUM [Concomitant]
  3. AMLODIPINE BESYLATE [Concomitant]
  4. DEPAKENE [Suspect]
     Dosage: 500 MG, 1X/DAY
     Route: 048
  5. AMIODARONE HCL [Suspect]
     Dosage: 1 DF, DAILY
  6. MIRTAZAPINE [Suspect]
     Dosage: 15 MG, 1X/DAY
  7. PLAVIX [Concomitant]
  8. DUPHALAC [Concomitant]

REACTIONS (1)
  - PARKINSONIAN REST TREMOR [None]
